FAERS Safety Report 13744759 (Version 1)
Quarter: 2017Q3

REPORT INFORMATION
  Report Type: Spontaneous
  Country: US (occurrence: US)
  Receive Date: 20170712
  Receipt Date: 20170712
  Transmission Date: 20171127
  Serious: No
  Sender: FDA-Public Use
  Company Number: US-TEVA-787077ACC

PATIENT
  Sex: Female

DRUGS (1)
  1. PARAGARD T 380A [Suspect]
     Active Substance: COPPER
     Indication: CONTRACEPTION
     Dates: start: 2017, end: 2017

REACTIONS (8)
  - Oedema peripheral [Not Recovered/Not Resolved]
  - Haemoglobin decreased [Unknown]
  - Breast swelling [Unknown]
  - Discomfort [Unknown]
  - Menorrhagia [Unknown]
  - Breast tenderness [Unknown]
  - Anaemia [Unknown]
  - Blood iron decreased [Unknown]
